FAERS Safety Report 18638882 (Version 1)
Quarter: 2020Q4

REPORT INFORMATION
  Report Type: Spontaneous
  Country: US (occurrence: US)
  Receive Date: 20201218
  Receipt Date: 20201218
  Transmission Date: 20210114
  Serious: No
  Sender: FDA-Public Use
  Company Number: US-ROCHE-2650717

PATIENT
  Age: 73 Year
  Sex: Male
  Weight: 84 kg

DRUGS (3)
  1. GAZYVA [Suspect]
     Active Substance: OBINUTUZUMAB
     Indication: CHRONIC LYMPHOCYTIC LEUKAEMIA
     Dosage: ONGOING: NO; ONCE IN A DAY
     Route: 042
     Dates: start: 20200727, end: 20200727
  2. ELIQUIS [Concomitant]
     Active Substance: APIXABAN
     Dosage: TWOCE A DAILY
     Route: 048
     Dates: start: 20200720
  3. GAZYVA [Suspect]
     Active Substance: OBINUTUZUMAB
     Dosage: ONGOING: YES; ONLY ABOUT HALF OF DOSE WAS COMPLETED
     Route: 042
     Dates: start: 20200728

REACTIONS (1)
  - Blood urine present [Unknown]

NARRATIVE: CASE EVENT DATE: 20200728
